FAERS Safety Report 8774876 (Version 2)
Quarter: 2019Q3

REPORT INFORMATION
  Report Type: Spontaneous
  Country: DE (occurrence: DE)
  Receive Date: 20120910
  Receipt Date: 20190906
  Transmission Date: 20191005
  Serious: Yes (Other)
  Sender: FDA-Public Use
  Company Number: DE-JNJFOC-20120814892

PATIENT
  Sex: Female
  Weight: 1.62 kg

DRUGS (14)
  1. RISPERDAL CONSTA [Suspect]
     Active Substance: RISPERIDONE
     Indication: PSYCHOTIC DISORDER
     Dosage: UNTIL DAY 4 OF THE 4 TH GESTATIONAL WEEK
     Route: 064
     Dates: start: 20110401, end: 2011
  2. RISPERDAL CONSTA [Suspect]
     Active Substance: RISPERIDONE
     Dosage: FROM GESTATIONAL WEEK 5 TILL 24-NOV-2011
     Route: 064
     Dates: start: 20110401, end: 20111124
  3. SEROQUEL [Suspect]
     Active Substance: QUETIAPINE FUMARATE
     Indication: PSYCHOTIC DISORDER
     Route: 064
     Dates: start: 20110409, end: 201105
  4. IBUPROFEN. [Concomitant]
     Active Substance: IBUPROFEN
     Indication: FOETAL EXPOSURE DURING PREGNANCY
     Route: 064
     Dates: start: 20110927, end: 20111124
  5. SEROQUEL [Suspect]
     Active Substance: QUETIAPINE FUMARATE
     Route: 064
     Dates: start: 201105, end: 20111124
  6. PROMETHAZINE [Suspect]
     Active Substance: PROMETHAZINE HYDROCHLORIDE
     Route: 064
  7. MELPERONE [Concomitant]
     Active Substance: MELPERONE
     Indication: PSYCHOTIC DISORDER
     Route: 064
     Dates: start: 20110409, end: 20110516
  8. BETAMETHASON [Concomitant]
     Active Substance: BETAMETHASONE
     Indication: MATERNAL THERAPY TO ENHANCE FOETAL LUNG MATURITY
     Route: 064
     Dates: start: 20111120, end: 20111121
  9. PROMETHAZINE [Suspect]
     Active Substance: PROMETHAZINE HYDROCHLORIDE
     Indication: RESTLESSNESS
     Route: 064
     Dates: start: 20110527, end: 20111124
  10. TOLPERISONE [Concomitant]
     Active Substance: TOLPERISONE
     Indication: PRODUCT USED FOR UNKNOWN INDICATION
     Dosage: 0. - 5.2 GESTATIONAL WEEK
     Route: 064
     Dates: start: 20110409, end: 20110516
  11. CARBAMAZEPIN [Concomitant]
     Active Substance: CARBAMAZEPINE
     Indication: TRIGEMINAL NEURALGIA
     Route: 064
     Dates: start: 20110927, end: 20111124
  12. INSULIN [Concomitant]
     Active Substance: INSULIN NOS
     Indication: GESTATIONAL DIABETES
     Dates: start: 2011
  13. ACETYLSALICYLSAEURE [Concomitant]
     Active Substance: ASPIRIN
     Indication: PRE-ECLAMPSIA
     Route: 064
     Dates: end: 20111120
  14. PROMETHAZINE [Suspect]
     Active Substance: PROMETHAZINE HYDROCHLORIDE
     Route: 064
     Dates: end: 20111124

REACTIONS (4)
  - Oesophageal atresia [Recovered/Resolved with Sequelae]
  - Haemangioma congenital [Unknown]
  - Premature baby [Not Recovered/Not Resolved]
  - Tracheo-oesophageal fistula [Recovered/Resolved with Sequelae]

NARRATIVE: CASE EVENT DATE: 20111124
